FAERS Safety Report 9602746 (Version 1)
Quarter: 2013Q4

REPORT INFORMATION
  Report Type: Spontaneous
  Country: US (occurrence: US)
  Receive Date: 20131007
  Receipt Date: 20131007
  Transmission Date: 20140711
  Serious: No
  Sender: FDA-Public Use
  Company Number: US-009507513-1310USA000850

PATIENT
  Age: 23 Year
  Sex: Female
  Weight: 63.39 kg

DRUGS (1)
  1. IMPLANON [Suspect]
     Indication: CONTRACEPTION
     Dosage: UNK, EVERY THREE YEARS
     Route: 059
     Dates: start: 20110915

REACTIONS (4)
  - Device kink [Unknown]
  - Device breakage [Unknown]
  - Application site pain [Unknown]
  - Menorrhagia [Unknown]
